FAERS Safety Report 9622438 (Version 1)
Quarter: 2013Q4

REPORT INFORMATION
  Report Type: Spontaneous
  Country: US (occurrence: US)
  Receive Date: 20131015
  Receipt Date: 20131015
  Transmission Date: 20140711
  Serious: No
  Sender: FDA-Public Use
  Company Number: US-PURDUE-USA-2012-0086049

PATIENT
  Age: 51 Year
  Sex: Female

DRUGS (3)
  1. BUTRANS [Suspect]
     Indication: PAIN IN EXTREMITY
     Dosage: UNK
     Route: 062
     Dates: start: 20120412
  2. NEXIUM                             /01479302/ [Concomitant]
     Indication: GASTROOESOPHAGEAL REFLUX DISEASE
     Dosage: UNK
  3. WARFARIN [Concomitant]
     Indication: PROPHYLAXIS
     Dosage: UNK

REACTIONS (7)
  - Skin discolouration [Unknown]
  - Oropharyngeal pain [Unknown]
  - Feeling hot [Unknown]
  - Inadequate analgesia [Unknown]
  - Headache [Unknown]
  - Abdominal discomfort [Unknown]
  - Cold sweat [Unknown]
